FAERS Safety Report 23338096 (Version 1)
Quarter: 2023Q4

REPORT INFORMATION
  Report Type: Spontaneous
  Country: US (occurrence: US)
  Receive Date: 20231226
  Receipt Date: 20231226
  Transmission Date: 20240110
  Serious: Yes (Hospitalization, Other)
  Sender: FDA-Public Use
  Company Number: US-LUPIN PHARMACEUTICALS INC.-2023-11551

PATIENT
  Age: 73 Year
  Sex: Male

DRUGS (9)
  1. HYDROCORTISONE [Interacting]
     Active Substance: HYDROCORTISONE
     Indication: Hypopituitarism
     Dosage: UNK, 15 MG IN THE MORNING AND 5 MG IN THE EVENING
     Route: 065
  2. HYDROCORTISONE [Interacting]
     Active Substance: HYDROCORTISONE
     Dosage: 80 MG, QD, 80 MG DAILY DIVIDED INTO 40/40 MG IN THE MORNING AND EVENING
     Route: 065
  3. RIFAMPIN [Interacting]
     Active Substance: RIFAMPIN
     Indication: Disseminated tuberculosis
     Dosage: UNK
     Route: 065
  4. TESTOSTERONE [Concomitant]
     Active Substance: TESTOSTERONE
     Indication: Hypopituitarism
     Dosage: UNK
     Route: 065
  5. DESMOPRESSIN [Concomitant]
     Active Substance: DESMOPRESSIN
     Indication: Hypopituitarism
     Dosage: UNK
     Route: 065
  6. ISONIAZID [Concomitant]
     Active Substance: ISONIAZID
     Indication: Disseminated tuberculosis
     Dosage: UNK
     Route: 065
  7. PYRAZINAMIDE [Concomitant]
     Active Substance: PYRAZINAMIDE
     Indication: Disseminated tuberculosis
     Dosage: UNK
     Route: 065
  8. ETHAMBUTOL [Concomitant]
     Active Substance: ETHAMBUTOL HYDROCHLORIDE
     Indication: Disseminated tuberculosis
     Dosage: UNK
     Route: 065
  9. LEVOTHYROXINE [Concomitant]
     Active Substance: LEVOTHYROXINE
     Indication: Hypopituitarism
     Dosage: UNK
     Route: 065

REACTIONS (4)
  - Adrenocortical insufficiency acute [Recovered/Resolved]
  - Drug interaction [Unknown]
  - Metabolic acidosis [Recovered/Resolved]
  - Off label use [Unknown]
